FAERS Safety Report 6860362-2 (Version None)
Quarter: 2010Q3

REPORT INFORMATION
  Report Type: 
  Country: None (occurrence: None)
  Receive Date: 20100720
  Receipt Date: 20100715
  Transmission Date: 20110219
  Serious: Yes (Death, Life-Threatening, Hospitalization)
  Sender: FDA-Public Use
  Company Number: GB-AMGEN-KDC421893

PATIENT
  Sex: Female

DRUGS (5)
  1. PANITUMUMAB [Suspect]
     Indication: COLORECTAL CANCER
     Route: 042
     Dates: start: 20100623, end: 20100623
  2. OXALIPLATIN [Concomitant]
     Dates: end: 20100624
  3. FLUOROURACIL [Concomitant]
     Dates: end: 20100624
  4. FOLINIC ACID [Concomitant]
     Dates: end: 20100624
  5. IBERSARTAN [Concomitant]

REACTIONS (3)
  - BLOOD CREATININE INCREASED [None]
  - CARDIAC ARREST [None]
  - DEHYDRATION [None]
